FAERS Safety Report 6844574-X (Version None)
Quarter: 2010Q3

REPORT INFORMATION
  Report Type: 
  Country: None (occurrence: None)
  Receive Date: 20100715
  Receipt Date: 20100129
  Transmission Date: 20110219
  Serious: Yes (Hospitalization, Other)
  Sender: FDA-Public Use
  Company Number: US-CELGENEUS-163-20785-10070433

PATIENT
  Sex: Male

DRUGS (20)
  1. THALOMID [Suspect]
     Indication: MULTIPLE MYELOMA
     Dosage: 50-100MG
     Route: 048
     Dates: start: 20040801
  2. THALOMID [Suspect]
     Route: 048
     Dates: start: 20040101, end: 20040301
  3. THALOMID [Suspect]
     Route: 048
     Dates: end: 20080101
  4. THALOMID [Suspect]
     Route: 048
     Dates: start: 20090101, end: 20090101
  5. THALOMID [Suspect]
     Route: 048
     Dates: start: 20100601
  6. DEXAMETHASONE [Suspect]
     Indication: MULTIPLE MYELOMA
     Route: 048
     Dates: start: 20040301
  7. DEXAMETHASONE [Suspect]
     Route: 065
     Dates: start: 20040101
  8. DEXAMETHASONE [Suspect]
     Route: 065
     Dates: start: 20060201
  9. DEXAMETHASONE [Suspect]
     Route: 048
     Dates: start: 20090101, end: 20090101
  10. VELCADE [Suspect]
     Indication: MULTIPLE MYELOMA
     Route: 065
     Dates: start: 20051101
  11. VELCADE [Suspect]
     Route: 065
     Dates: start: 20060201
  12. VELCADE [Suspect]
     Route: 065
  13. VELCADE [Suspect]
     Route: 065
     Dates: start: 20090101, end: 20090101
  14. MELPHALAN [Suspect]
     Indication: MULTIPLE MYELOMA
     Route: 065
     Dates: start: 20090101, end: 20090101
  15. ANTIBIOTICS [Concomitant]
     Indication: PROPHYLAXIS
     Route: 065
  16. ANTICOAGULANTS [Concomitant]
     Indication: PROPHYLAXIS
     Route: 065
  17. ALDACTONE [Concomitant]
     Indication: PRODUCT USED FOR UNKNOWN INDICATION
     Route: 065
  18. SYNTHROID [Concomitant]
     Indication: PRODUCT USED FOR UNKNOWN INDICATION
     Route: 065
  19. PREVACID [Concomitant]
     Indication: PRODUCT USED FOR UNKNOWN INDICATION
     Route: 065
  20. OXYCODONE HCL [Concomitant]
     Indication: PRODUCT USED FOR UNKNOWN INDICATION
     Route: 065

REACTIONS (8)
  - DISEASE PROGRESSION [None]
  - GASTROINTESTINAL HAEMORRHAGE [None]
  - HERPES ZOSTER [None]
  - INFECTION [None]
  - MULTI-ORGAN FAILURE [None]
  - SKIN ULCER [None]
  - STAPHYLOCOCCAL SEPSIS [None]
  - THROMBOCYTOPENIA [None]
